FAERS Safety Report 11672816 (Version 1)
Quarter: 2015Q4

REPORT INFORMATION
  Report Type: Spontaneous
  Country: US (occurrence: None)
  Receive Date: 20151026
  Receipt Date: 20151026
  Transmission Date: 20160304
  Serious: Yes (Hospitalization)
  Sender: FDA-Public Use
  Company Number: None

PATIENT
  Age: 27 Year
  Sex: Male

DRUGS (3)
  1. PENICILLIN [Suspect]
     Active Substance: PENICILLIN
     Indication: CELLULITIS
     Dosage: 25000000 IU
     Route: 042
     Dates: start: 20150220, end: 20150301
  2. PENICILLIN [Suspect]
     Active Substance: PENICILLIN
     Indication: CARDIOVASCULAR DISORDER
     Dosage: 25000000 IU
     Route: 042
     Dates: start: 20150220, end: 20150301
  3. PENICILLIN [Suspect]
     Active Substance: PENICILLIN
     Indication: SURGERY
     Dosage: 25000000 IU
     Route: 042
     Dates: start: 20150220, end: 20150301

REACTIONS (3)
  - Tubulointerstitial nephritis [None]
  - Acute kidney injury [None]
  - Drug level increased [None]

NARRATIVE: CASE EVENT DATE: 20150218
